FAERS Safety Report 19144397 (Version 1)
Quarter: 2021Q2

REPORT INFORMATION
  Report Type: Spontaneous
  Country: FR (occurrence: FR)
  Receive Date: 20210416
  Receipt Date: 20210416
  Transmission Date: 20210717
  Serious: Yes (Hospitalization)
  Sender: FDA-Public Use
  Company Number: FR-ROCHE-2811144

PATIENT
  Age: 16 Year
  Sex: Female
  Weight: 52 kg

DRUGS (1)
  1. CELLCEPT [Suspect]
     Active Substance: MYCOPHENOLATE MOFETIL\MYCOPHENOLATE MOFETIL HYDROCHLORIDE
     Indication: LUNG TRANSPLANT
     Route: 048
     Dates: start: 202007, end: 20210317

REACTIONS (2)
  - Terminal ileitis [Recovering/Resolving]
  - Colitis [Recovering/Resolving]

NARRATIVE: CASE EVENT DATE: 202102
